FAERS Safety Report 20476604 (Version 1)
Quarter: 2022Q1

REPORT INFORMATION
  Report Type: Spontaneous
  Country: US (occurrence: None)
  Receive Date: 20220215
  Receipt Date: 20220215
  Transmission Date: 20220424
  Serious: Yes (Other)
  Sender: FDA-Public Use
  Company Number: US-NESTLEHEALTHSCIENCE-2022000007

PATIENT
  Sex: Female
  Weight: 51.7 kg

DRUGS (1)
  1. ZENPEP [Suspect]
     Active Substance: PANCRELIPASE AMYLASE\PANCRELIPASE LIPASE\PANCRELIPASE PROTEASE
     Dosage: 3 YEARS AGO WAS TAKING 1 PILL (3 TIMESDAY) AND NOW 3 PILLS WITH MEALS AN 2PILLS WITH SNACKS

REACTIONS (5)
  - Neuropathy peripheral [Recovering/Resolving]
  - Joint swelling [Recovering/Resolving]
  - Diarrhoea [Recovered/Resolved]
  - Nausea [Recovered/Resolved]
  - Off label use [Not Recovered/Not Resolved]
